FAERS Safety Report 18124713 (Version 1)
Quarter: 2020Q3

REPORT INFORMATION
  Report Type: Report from Study
  Country: JP (occurrence: JP)
  Receive Date: 20200807
  Receipt Date: 20200807
  Transmission Date: 20201104
  Serious: Yes (Hospitalization)
  Sender: FDA-Public Use
  Company Number: JP-DAIICHI SANKYO (CHINA) HOLDINGS CO., LTD.-DSJ-2020-122495

PATIENT

DRUGS (54)
  1. TRASTUZUMAB DERUXTECAN. [Suspect]
     Active Substance: TRASTUZUMAB DERUXTECAN
     Dosage: 3.2 MG/KG, ONCE EVERY 3 WK
     Route: 041
     Dates: start: 20200721, end: 20200721
  2. GLUCOSE [Concomitant]
     Active Substance: DEXTROSE
     Indication: PREMEDICATION
     Dosage: 200 ML, ONCE EVERY 3 WK
     Route: 042
     Dates: start: 20190115
  3. IOHEXOL [Concomitant]
     Active Substance: IOHEXOL
     Indication: COMPUTERISED TOMOGRAM
     Dosage: 100 ML, SINGLE
     Route: 042
     Dates: start: 20181228, end: 20181228
  4. IOHEXOL [Concomitant]
     Active Substance: IOHEXOL
     Dosage: 100 ML, SINGLE
     Route: 042
     Dates: start: 20190815, end: 20190815
  5. IOPAMIDOL [Concomitant]
     Active Substance: IOPAMIDOL
     Dosage: 100 ML, SINGLE
     Route: 042
     Dates: start: 20190421, end: 20190421
  6. GADOBUTROL. [Concomitant]
     Active Substance: GADOBUTROL
     Dosage: 6.8 ML, SINGLE
     Route: 042
     Dates: start: 20190219, end: 20190219
  7. LACTEC [Concomitant]
     Active Substance: CALCIUM CHLORIDE ANHYDROUS\POTASSIUM CHLORIDE\SODIUM CHLORIDE\SODIUM LACTATE
     Indication: FLUID REPLACEMENT
     Dosage: 500 ML, SINGLE
     Route: 042
     Dates: start: 20190904, end: 20190904
  8. IOMEPROL [Concomitant]
     Active Substance: IOMEPROL
     Indication: COMPUTERISED TOMOGRAM
     Dosage: 96 ML, SINGLE
     Route: 042
     Dates: start: 20190930, end: 20190930
  9. ACETAMINOPHEN. [Concomitant]
     Active Substance: ACETAMINOPHEN
     Indication: HEADACHE
     Dosage: 300 MG, QD
     Route: 048
     Dates: start: 20191213, end: 20191214
  10. HYDROCORTISONE. [Concomitant]
     Active Substance: HYDROCORTISONE
     Indication: ANAL FISSURE
     Dosage: 2 G, AS NEEDED
     Route: 061
     Dates: start: 20200602
  11. TRASTUZUMAB DERUXTECAN. [Suspect]
     Active Substance: TRASTUZUMAB DERUXTECAN
     Indication: HER2 POSITIVE BREAST CANCER
     Dosage: 5.4 MG/KG, ONCE EVERY 3 WK
     Route: 041
     Dates: start: 20190115, end: 20191023
  12. TRASTUZUMAB DERUXTECAN. [Suspect]
     Active Substance: TRASTUZUMAB DERUXTECAN
     Dosage: 4.4 MG/KG, ONCE EVERY 3 WK
     Route: 041
     Dates: start: 20191223, end: 20200413
  13. TRASTUZUMAB DERUXTECAN. [Suspect]
     Active Substance: TRASTUZUMAB DERUXTECAN
     Dosage: 4.4 MG/KG, ONCE EVERY 3 WK
     Route: 041
     Dates: start: 20200623, end: 20200623
  14. IOHEXOL [Concomitant]
     Active Substance: IOHEXOL
     Dosage: 100 ML, SINGLE
     Route: 042
     Dates: start: 20191030, end: 20191030
  15. IOPAMIDOL [Concomitant]
     Active Substance: IOPAMIDOL
     Indication: COMPUTERISED TOMOGRAM
     Dosage: 100 ML, SINGLE
     Route: 042
     Dates: start: 20190219, end: 20190219
  16. TIPEPIDINE HIBENZATE [Concomitant]
     Active Substance: TIPEPIDINE HIBENZATE
     Indication: UPPER RESPIRATORY TRACT INFECTION
     Dosage: 20 MG, TID
     Route: 048
     Dates: start: 20190208, end: 20190215
  17. PL [Concomitant]
     Active Substance: ACETAMINOPHEN\CAFFEINE\PROMETHAZINE\SALICYLAMIDE
     Indication: NASOPHARYNGITIS
     Dosage: 1000 MG, TID
     Route: 048
     Dates: start: 20200204, end: 20200209
  18. EPRAZINONE HYDROCHLORIDE [Concomitant]
     Active Substance: EPRAZINONE HYDROCHLORIDE
     Indication: NASOPHARYNGITIS
     Dosage: 30 MG, TID
     Route: 048
     Dates: start: 20191120, end: 20191124
  19. TRASTUZUMAB DERUXTECAN. [Suspect]
     Active Substance: TRASTUZUMAB DERUXTECAN
     Dosage: 5.4 MG/KG, ONCE EVERY 3 WK
     Route: 041
     Dates: start: 20191126, end: 20191126
  20. GADOBUTROL. [Concomitant]
     Active Substance: GADOBUTROL
     Indication: MAGNETIC RESONANCE IMAGING
     Dosage: 6.8 ML, SINGLE
     Route: 042
     Dates: start: 20190108, end: 20190108
  21. GADOBUTROL. [Concomitant]
     Active Substance: GADOBUTROL
     Dosage: 6.8 ML, SINGLE
     Route: 042
     Dates: start: 20190709, end: 20190709
  22. GADOBUTROL. [Concomitant]
     Active Substance: GADOBUTROL
     Dosage: 100 ML, SINGLE
     Route: 042
     Dates: start: 20200128, end: 20200128
  23. CARBOCISTEIN [Concomitant]
     Active Substance: CARBOCYSTEINE
     Indication: NASOPHARYNGITIS
     Dosage: 500 MG, TID
     Route: 048
     Dates: start: 20191120, end: 20191124
  24. TIPEPIDINE HIBENZATE [Concomitant]
     Active Substance: TIPEPIDINE HIBENZATE
     Dosage: 40 MG, TID
     Route: 048
     Dates: start: 20190215, end: 20190222
  25. BEPOTASTINE BESILATE [Concomitant]
     Active Substance: BEPOTASTINE BESYLATE
     Indication: UPPER RESPIRATORY TRACT INFECTION
     Dosage: 10 MG, BID
     Route: 048
     Dates: start: 20190208, end: 20190215
  26. MONTELUKAST SODIUM. [Concomitant]
     Active Substance: MONTELUKAST SODIUM
     Indication: UPPER RESPIRATORY TRACT INFECTION
     Dosage: 10 MG, QD
     Route: 048
     Dates: start: 20190215, end: 20190222
  27. IOMEPROL [Concomitant]
     Active Substance: IOMEPROL
     Dosage: 97 ML, SINGLE
     Route: 042
     Dates: start: 20200316, end: 20200316
  28. LOXONIN [Concomitant]
     Active Substance: LOXOPROFEN SODIUM
     Indication: HEADACHE
     Dosage: 60 MG, AS NEEDED
     Route: 048
     Dates: start: 20200204, end: 20200213
  29. GADOTERIDOL [Concomitant]
     Active Substance: GADOTERIDOL
     Indication: MAGNETIC RESONANCE IMAGING
     Dosage: 14 ML, SINGLE
     Route: 042
     Dates: start: 20190814, end: 20190814
  30. IOPAMIDOL [Concomitant]
     Active Substance: IOPAMIDOL
     Dosage: 100 ML, SINGLE
     Route: 042
     Dates: start: 20200128, end: 20200128
  31. GADOBUTROL. [Concomitant]
     Active Substance: GADOBUTROL
     Dosage: 6.8 ML, SINGLE
     Route: 042
     Dates: start: 20190514, end: 20190514
  32. GADOBUTROL. [Concomitant]
     Active Substance: GADOBUTROL
     Dosage: 7 ML, SINGLE
     Route: 042
     Dates: start: 20191218, end: 20191218
  33. DEXAMETHASONE SODIUM PHOSPHATE. [Concomitant]
     Active Substance: DEXAMETHASONE SODIUM PHOSPHATE
     Indication: PREMEDICATION
     Dosage: 6.6 MG, ONCE EVERY 3 WK
     Route: 042
     Dates: start: 20190115
  34. METOCLOPRAMIDE HYDROCHLORIDE. [Concomitant]
     Active Substance: METOCLOPRAMIDE HYDROCHLORIDE
     Indication: NAUSEA
     Dosage: 5 MG, AS NEEDED
     Route: 048
     Dates: start: 20190122
  35. PALONOSETRON HYDROCHLORIDE. [Concomitant]
     Active Substance: PALONOSETRON HYDROCHLORIDE
     Indication: PREMEDICATION
     Dosage: 0.75 MG, ONCE EVERY 3 WK
     Route: 042
     Dates: start: 20190115
  36. IOHEXOL [Concomitant]
     Active Substance: IOHEXOL
     Dosage: 100 ML, SINGLE
     Route: 042
     Dates: start: 20190514, end: 20190514
  37. LEVOFLOXACIN HEMIHYDRATE [Concomitant]
     Active Substance: LEVOFLOXACIN
     Dosage: 500 MG, QD
     Route: 048
     Dates: start: 20200627, end: 20200629
  38. TRASTUZUMAB DERUXTECAN. [Suspect]
     Active Substance: TRASTUZUMAB DERUXTECAN
     Dosage: 4.4 MG/KG, ONCE EVERY 3 WK
     Route: 041
     Dates: start: 20200518, end: 20200518
  39. GADOBUTROL. [Concomitant]
     Active Substance: GADOBUTROL
     Dosage: 7 ML, SINGLE
     Route: 042
     Dates: start: 20191030, end: 20191030
  40. CARBOCISTEIN [Concomitant]
     Active Substance: CARBOCYSTEINE
     Indication: UPPER RESPIRATORY TRACT INFECTION
     Dosage: 500 MG, TID
     Route: 048
     Dates: start: 20190208, end: 20190215
  41. INFLUENZA HA VACCINE [Concomitant]
     Active Substance: INFLUENZA VIRUS VACCINE
     Indication: ANTIVIRAL PROPHYLAXIS
     Dosage: 0.5 ML, SINGLE
     Route: 042
     Dates: start: 20191113, end: 20191113
  42. LEVOFLOXACIN HEMIHYDRATE [Concomitant]
     Active Substance: LEVOFLOXACIN
     Indication: NASOPHARYNGITIS
     Dosage: 500 MG, QD
     Route: 048
     Dates: start: 20191115, end: 20191117
  43. GADOTERIDOL [Concomitant]
     Active Substance: GADOTERIDOL
     Dosage: 7 ML, SINGLE
     Route: 042
     Dates: start: 20191001, end: 20191001
  44. MAGNESIUM OXIDE. [Concomitant]
     Active Substance: MAGNESIUM OXIDE
     Indication: CONSTIPATION
     Dosage: 500 MG, TID
     Route: 048
     Dates: start: 20190122
  45. IOHEXOL [Concomitant]
     Active Substance: IOHEXOL
     Dosage: 100 ML, SINGLE
     Route: 042
     Dates: start: 20191118, end: 20191118
  46. IOPAMIDOL [Concomitant]
     Active Substance: IOPAMIDOL
     Dosage: 100 ML, SINGLE
     Route: 042
     Dates: start: 20190625, end: 20190625
  47. GADOBUTROL. [Concomitant]
     Active Substance: GADOBUTROL
     Dosage: 6.8 ML, SINGLE
     Route: 042
     Dates: start: 20190421, end: 20190421
  48. GADOBUTROL. [Concomitant]
     Active Substance: GADOBUTROL
     Dosage: 6.8 ML, SINGLE
     Route: 042
     Dates: start: 20190806, end: 20190806
  49. GADOBUTROL. [Concomitant]
     Active Substance: GADOBUTROL
     Dosage: 100 ML, SINGLE
     Route: 042
     Dates: start: 20200317, end: 20200317
  50. KAKKONTOKASENKYUSHIN^I             /07986001/ [Concomitant]
     Indication: UPPER RESPIRATORY TRACT INFECTION
     Dosage: 2.5 G, TID
     Route: 048
     Dates: start: 20190208, end: 20190215
  51. TRANEXAMIC ACID. [Concomitant]
     Active Substance: TRANEXAMIC ACID
     Indication: UPPER RESPIRATORY TRACT INFECTION
     Dosage: 500 MG, TID
     Route: 048
     Dates: start: 20190208, end: 20190215
  52. TRANEXAMIC ACID. [Concomitant]
     Active Substance: TRANEXAMIC ACID
     Indication: NASOPHARYNGITIS
     Dosage: 500 MG, TID
     Route: 048
     Dates: start: 20191120, end: 20191124
  53. LEVOFLOXACIN HEMIHYDRATE [Concomitant]
     Active Substance: LEVOFLOXACIN
     Indication: PYREXIA
     Dosage: 500 MG, TID
     Route: 048
     Dates: start: 20191120, end: 20191124
  54. LEVOFLOXACIN HEMIHYDRATE [Concomitant]
     Active Substance: LEVOFLOXACIN
     Dosage: 500 MG, QD
     Route: 048
     Dates: start: 20191212, end: 20191214

REACTIONS (1)
  - Pyrexia [Not Recovered/Not Resolved]

NARRATIVE: CASE EVENT DATE: 20200803
